FAERS Safety Report 5643882-8 (Version None)
Quarter: 2008Q1

REPORT INFORMATION
  Report Type: 
  Country: None (occurrence: None)
  Receive Date: 20080226
  Receipt Date: 20080220
  Transmission Date: 20080703
  Serious: Yes (Life-Threatening, Hospitalization)
  Sender: FDA-Public Use
  Company Number: 15697

PATIENT
  Age: 78 Year
  Sex: Male

DRUGS (18)
  1. CYTARABINE [Suspect]
     Indication: ACUTE MYELOID LEUKAEMIA
     Dosage: 20 MG/M2 QD SC
     Route: 058
     Dates: start: 20060802, end: 20061201
  2. VITAMIN B-12 [Concomitant]
  3. PROSCAR [Concomitant]
  4. ATENOLOL [Concomitant]
  5. K-DUR 10 [Concomitant]
  6. CENTRUM SILVER [Concomitant]
  7. TUMS [Concomitant]
  8. PRED FORTE [Concomitant]
  9. ACULAR [Concomitant]
  10. ARANESP [Concomitant]
  11. NEULASTA [Concomitant]
  12. TYLENOL (CAPLET) [Concomitant]
  13. ZOSYN [Concomitant]
  14. VANCOMYCIN [Concomitant]
  15. AMOXICILLIN [Concomitant]
  16. CHLORHEXIDINE GLUCONATE [Concomitant]
  17. PERIDEX [Concomitant]
  18. AUGMENTIN '125' [Concomitant]

REACTIONS (17)
  - ACQUIRED OESOPHAGEAL WEB [None]
  - ANIMAL SCRATCH [None]
  - ANISOCYTOSIS [None]
  - BLOOD PRESSURE SYSTOLIC INCREASED [None]
  - COLON ADENOMA [None]
  - COLONIC POLYP [None]
  - DIVERTICULUM INTESTINAL [None]
  - ELLIPTOCYTOSIS [None]
  - HAEMORRHOIDS [None]
  - HEART RATE INCREASED [None]
  - HIATUS HERNIA [None]
  - LEUKAEMIC INFILTRATION PULMONARY [None]
  - PANCYTOPENIA [None]
  - PNEUMONIA [None]
  - POIKILOCYTOSIS [None]
  - POOR VENOUS ACCESS [None]
  - RED BLOOD CELL ACANTHOCYTES PRESENT [None]
